FAERS Safety Report 5778613-4 (Version None)
Quarter: 2008Q2

REPORT INFORMATION
  Report Type: 
  Country: None (occurrence: None)
  Receive Date: 20080619
  Receipt Date: 20080612
  Transmission Date: 20081010
  Serious: Yes (Hospitalization)
  Sender: FDA-Public Use
  Company Number: FR-ASTRAZENECA-2008CG00927

PATIENT
  Age: 55 Year
  Sex: Female

DRUGS (6)
  1. NEXIUM [Suspect]
     Route: 048
     Dates: start: 20070801, end: 20080407
  2. MONO-TILDIEM [Suspect]
     Route: 048
     Dates: start: 20080301, end: 20080407
  3. SERMION [Suspect]
     Route: 048
     Dates: start: 20080305, end: 20080407
  4. ODRIK [Suspect]
     Route: 048
     Dates: start: 20080201, end: 20080407
  5. VASTAREL [Suspect]
     Route: 048
     Dates: start: 20080201, end: 20080407
  6. LECTIL [Suspect]
     Route: 048
     Dates: start: 20080201, end: 20080407

REACTIONS (4)
  - PRURITUS [None]
  - RASH ERYTHEMATOUS [None]
  - RASH MACULO-PAPULAR [None]
  - TOXIC SKIN ERUPTION [None]
